FAERS Safety Report 20867560 (Version 2)
Quarter: 2022Q2

REPORT INFORMATION
  Report Type: Spontaneous
  Country: US (occurrence: US)
  Receive Date: 20220524
  Receipt Date: 20220601
  Transmission Date: 20220721
  Serious: No
  Sender: FDA-Public Use
  Company Number: US-PFIZER INC-202200745678

PATIENT
  Age: 75 Year
  Sex: Female

DRUGS (1)
  1. IBRANCE [Suspect]
     Active Substance: PALBOCICLIB
     Dosage: 125 MG
     Dates: start: 20220428

REACTIONS (5)
  - Fatigue [Unknown]
  - Constipation [Unknown]
  - Dry mouth [Unknown]
  - Nausea [Unknown]
  - Insomnia [Unknown]
